FAERS Safety Report 18150031 (Version 1)
Quarter: 2020Q3

REPORT INFORMATION
  Report Type: Spontaneous
  Country: US (occurrence: US)
  Receive Date: 20200814
  Receipt Date: 20200814
  Transmission Date: 20201103
  Serious: Yes (Other)
  Sender: FDA-Public Use
  Company Number: US-PFIZER INC-2020305244

PATIENT
  Age: 70 Year
  Sex: Female

DRUGS (4)
  1. DOXORUBICIN HCL [Suspect]
     Active Substance: DOXORUBICIN HYDROCHLORIDE
     Indication: CUTANEOUS T-CELL LYMPHOMA
     Dosage: UNK, CYCLIC, (ONE CYCLE)
  2. CYCLOPHOSPHAMIDE. [Suspect]
     Active Substance: CYCLOPHOSPHAMIDE
     Indication: CUTANEOUS T-CELL LYMPHOMA
     Dosage: UNK, CYCLIC, (ONE CYCLE)
  3. PREDNISONE. [Suspect]
     Active Substance: PREDNISONE
     Indication: CUTANEOUS T-CELL LYMPHOMA
     Dosage: UNK, CYCLIC, (ONE CYCLE)
  4. VINCRISTINE SULFATE. [Suspect]
     Active Substance: VINCRISTINE SULFATE
     Indication: CUTANEOUS T-CELL LYMPHOMA
     Dosage: UNK, CYCLIC, (ONE CYCLE)
     Route: 058

REACTIONS (2)
  - Superinfection [Unknown]
  - Urosepsis [Unknown]
